FAERS Safety Report 14163806 (Version 4)
Quarter: 2017Q4

REPORT INFORMATION
  Report Type: Report from Study
  Country: None (occurrence: US)
  Receive Date: 20171107
  Receipt Date: 20171204
  Transmission Date: 20180321
  Serious: Yes (Hospitalization, Other)
  Sender: FDA-Public Use
  Company Number: US-ABBVIE-17K-163-2148784-00

PATIENT
  Age: 43 Year
  Sex: Male
  Weight: 97.16 kg

DRUGS (3)
  1. HUMIRA [Suspect]
     Active Substance: ADALIMUMAB
     Indication: CROHN^S DISEASE
     Route: 058
     Dates: start: 2006
  2. LIPITOR [Concomitant]
     Active Substance: ATORVASTATIN CALCIUM
     Indication: BLOOD CHOLESTEROL INCREASED
  3. MERCAPTOPURINE. [Concomitant]
     Active Substance: MERCAPTOPURINE
     Indication: CROHN^S DISEASE

REACTIONS (14)
  - Lumbar spinal stenosis [Not Recovered/Not Resolved]
  - Depression [Recovering/Resolving]
  - Gout [Unknown]
  - Pneumonia aspiration [Recovered/Resolved]
  - Anal fistula [Recovered/Resolved]
  - Anxiety [Recovering/Resolving]
  - Crohn^s disease [Recovered/Resolved]
  - Condition aggravated [Recovered/Resolved]
  - Visual acuity reduced [Not Recovered/Not Resolved]
  - Post procedural complication [Recovered/Resolved]
  - Nerve compression [Not Recovered/Not Resolved]
  - Retinal detachment [Recovered/Resolved with Sequelae]
  - Osteoarthritis [Not Recovered/Not Resolved]
  - Back pain [Not Recovered/Not Resolved]

NARRATIVE: CASE EVENT DATE: 2006
